FAERS Safety Report 18080335 (Version 1)
Quarter: 2020Q3

REPORT INFORMATION
  Report Type: Spontaneous
  Country: IN (occurrence: IN)
  Receive Date: 20200728
  Receipt Date: 20200728
  Transmission Date: 20201103
  Serious: No
  Sender: FDA-Public Use
  Company Number: IN-LUPIN LIMITED-2020-01344

PATIENT
  Age: 38 Year
  Sex: Female

DRUGS (4)
  1. EPILIVE FILM C.TABS 250 MG [Suspect]
     Active Substance: LEVETIRACETAM
     Indication: EPILEPSY
     Dosage: 250 MILLIGRAM, BID
     Route: 048
     Dates: start: 2016
  2. EPILIVE FILM C.TABS 250 MG [Suspect]
     Active Substance: LEVETIRACETAM
     Dosage: 250 MILLIGRAM, BID
     Route: 048
     Dates: start: 20200228
  3. EPILIVE FILM C.TABS 250 MG [Suspect]
     Active Substance: LEVETIRACETAM
     Dosage: 375 MILLIGRAM (1 TABLET OF EPILIVE WITH 0.5 TABLET OF EPILIVE)
     Route: 048
     Dates: start: 201910
  4. EPILIVE FILM C.TABS 250 MG [Suspect]
     Active Substance: LEVETIRACETAM
     Dosage: 250 MILLIGRAM, BID
     Route: 048
     Dates: start: 20200229

REACTIONS (5)
  - Erythema [Not Recovered/Not Resolved]
  - Wrong technique in product usage process [Unknown]
  - Pruritus [Not Recovered/Not Resolved]
  - Rash [Not Recovered/Not Resolved]
  - Product prescribing error [Unknown]

NARRATIVE: CASE EVENT DATE: 201910
